FAERS Safety Report 7052606-1 (Version None)
Quarter: 2010Q4

REPORT INFORMATION
  Report Type: 
  Country: None (occurrence: None)
  Receive Date: 20101019
  Receipt Date: 20101012
  Transmission Date: 20110411
  Serious: Yes (Other)
  Sender: FDA-Public Use
  Company Number: GB-PFIZER INC-2010104979

PATIENT
  Age: 18 Month
  Sex: Female
  Weight: 11.5 kg

DRUGS (3)
  1. VORICONAZOLE [Suspect]
     Indication: ANTIFUNGAL TREATMENT
     Dosage: 200 MG, 2X/DAY
  2. VANCOMYCIN [Suspect]
  3. CHLORPHENAMINE [Concomitant]

REACTIONS (2)
  - DRUG HYPERSENSITIVITY [None]
  - RED MAN SYNDROME [None]
